FAERS Safety Report 12146616 (Version 1)
Quarter: 2016Q1

REPORT INFORMATION
  Report Type: Spontaneous
  Country: US (occurrence: US)
  Receive Date: 20160304
  Receipt Date: 20160304
  Transmission Date: 20160526
  Serious: Yes (Other)
  Sender: FDA-Public Use
  Company Number: US-CELGENE-USA-2016024374

PATIENT
  Age: 95 Year
  Sex: Female
  Weight: 64 kg

DRUGS (17)
  1. PROPYLENE GLYCOL GLUMORINE [Concomitant]
     Indication: PRODUCT USED FOR UNKNOWN INDICATION
     Dosage: 10 MILLIGRAM
     Route: 065
  2. HYDROCHLOROTHIAZIDE. [Concomitant]
     Active Substance: HYDROCHLOROTHIAZIDE
     Indication: OEDEMA
     Route: 065
  3. ERGOCALCIFEROL. [Concomitant]
     Active Substance: ERGOCALCIFEROL
     Indication: PRODUCT USED FOR UNKNOWN INDICATION
     Dosage: 650 MILLIGRAM
     Route: 065
  4. LOSARTAN. [Concomitant]
     Active Substance: LOSARTAN
     Indication: HYPERTENSION
     Dosage: 25 MILLIGRAM
     Route: 065
  5. TRIAMCINOLONE [Concomitant]
     Active Substance: TRIAMCINOLONE
     Indication: MULTIPLE ALLERGIES
     Route: 065
  6. POMALYST [Suspect]
     Active Substance: POMALIDOMIDE
     Indication: PLASMA CELL MYELOMA
     Route: 048
     Dates: start: 20160115
  7. MELATONIN [Concomitant]
     Active Substance: MELATONIN
     Route: 048
  8. AMLODIPINE BESYLATE. [Concomitant]
     Active Substance: AMLODIPINE BESYLATE
     Indication: HYPERTENSION
     Route: 065
  9. POMALYST [Suspect]
     Active Substance: POMALIDOMIDE
     Dosage: .005 PERCENT
     Route: 048
     Dates: start: 20160209, end: 20160216
  10. LATANOPROST. [Concomitant]
     Active Substance: LATANOPROST
     Indication: PRODUCT USED FOR UNKNOWN INDICATION
     Route: 065
  11. PAROXETINE [Concomitant]
     Active Substance: PAROXETINE\PAROXETINE HYDROCHLORIDE
     Indication: NEUROPATHY PERIPHERAL
     Dosage: 5 MILLIGRAM
     Route: 065
  12. POTASSIUM CHLORIDE. [Concomitant]
     Active Substance: POTASSIUM CHLORIDE
     Indication: PRODUCT USED FOR UNKNOWN INDICATION
     Route: 065
  13. DOCUSATE SODIUM. [Concomitant]
     Active Substance: DOCUSATE SODIUM
     Indication: PRODUCT USED FOR UNKNOWN INDICATION
     Route: 065
  14. ACETAMINOPHEN. [Concomitant]
     Active Substance: ACETAMINOPHEN
     Indication: PAIN
     Route: 065
  15. XALATAN [Concomitant]
     Active Substance: LATANOPROST
     Indication: GLAUCOMA
     Route: 065
  16. MELATONIN [Concomitant]
     Active Substance: MELATONIN
     Indication: SLEEP DISORDER
     Dosage: 50 MILLIGRAM
     Route: 065
  17. COLACE [Concomitant]
     Active Substance: DOCUSATE SODIUM
     Indication: PRODUCT USED FOR UNKNOWN INDICATION
     Route: 065

REACTIONS (3)
  - Rash [Not Recovered/Not Resolved]
  - Malaise [Unknown]
  - Drug intolerance [Unknown]

NARRATIVE: CASE EVENT DATE: 2016
